FAERS Safety Report 9495511 (Version 1)
Quarter: 2013Q3

REPORT INFORMATION
  Report Type: Spontaneous
  Country: US (occurrence: US)
  Receive Date: 20130903
  Receipt Date: 20130903
  Transmission Date: 20140515
  Serious: No
  Sender: FDA-Public Use
  Company Number: US-SANOFI-AVENTIS-2013SA044856

PATIENT
  Age: 7 Year
  Sex: Male

DRUGS (2)
  1. ALLEGRA [Suspect]
     Indication: HYPERSENSITIVITY
     Route: 048
  2. ALLEGRA [Concomitant]
     Dosage: SUSPENSION
     Route: 065
     Dates: start: 201209

REACTIONS (2)
  - Product taste abnormal [Recovered/Resolved]
  - Product size issue [Unknown]
